FAERS Safety Report 8226996-8 (Version None)
Quarter: 2012Q1

REPORT INFORMATION
  Report Type: 
  Country: None (occurrence: None)
  Receive Date: 20120322
  Receipt Date: 20120315
  Transmission Date: 20120608
  Serious: No
  Sender: FDA-Public Use
  Company Number: US-PFIZER INC-2012034311

PATIENT
  Sex: Female

DRUGS (1)
  1. SUTENT [Suspect]
     Indication: METASTATIC RENAL CELL CARCINOMA
     Dosage: 50 MG, DAILY, 1 CAPSULE DAILY, CYCLE 4 WEEKS ON AND 2 OFF
     Route: 048
     Dates: start: 20120113

REACTIONS (11)
  - FATIGUE [None]
  - INCREASED TENDENCY TO BRUISE [None]
  - NAUSEA [None]
  - STOMATITIS [None]
  - ANXIETY [None]
  - INCORRECT DOSE ADMINISTERED [None]
  - ORAL PAIN [None]
  - DISTURBANCE IN ATTENTION [None]
  - LIVER DISORDER [None]
  - ARTHRALGIA [None]
  - VOMITING [None]
